FAERS Safety Report 24169059 (Version 1)
Quarter: 2024Q3

REPORT INFORMATION
  Report Type: Spontaneous
  Country: US (occurrence: US)
  Receive Date: 20240802
  Receipt Date: 20240802
  Transmission Date: 20241016
  Serious: No
  Sender: PFIZER
  Company Number: US-PFIZER INC-202400227796

PATIENT
  Age: 64 Year
  Sex: Female

DRUGS (1)
  1. IBRANCE [Suspect]
     Active Substance: PALBOCICLIB
     Dosage: 100 MG, 1X/DAY, CYCLIC (ONCE DAILY, FOR 21 DAYS AND 7 DAYS OFF)
     Route: 048

REACTIONS (3)
  - Weight decreased [Unknown]
  - Appetite disorder [Unknown]
  - Dysgeusia [Not Recovered/Not Resolved]
